FAERS Safety Report 16089809 (Version 8)
Quarter: 2023Q4

REPORT INFORMATION
  Report Type: Report from Study
  Country: JP (occurrence: JP)
  Receive Date: 20190319
  Receipt Date: 20231020
  Transmission Date: 20240110
  Serious: Yes (Hospitalization, Other)
  Sender: FDA-Public Use
  Company Number: JP-GLAXOSMITHKLINE-JP2018JPN144948

PATIENT

DRUGS (45)
  1. BELIMUMAB [Suspect]
     Active Substance: BELIMUMAB
     Indication: Systemic lupus erythematosus
     Dosage: 10 MG/KG, EVERY 2 WEEKS
     Route: 041
     Dates: start: 20180119, end: 20180216
  2. BELIMUMAB [Suspect]
     Active Substance: BELIMUMAB
     Dosage: 10 MG/KG, EVERY 4 WEEKS
     Route: 041
     Dates: start: 20180330, end: 20190405
  3. BELIMUMAB [Suspect]
     Active Substance: BELIMUMAB
     Dosage: UNK
     Route: 041
     Dates: start: 20190308
  4. PREDNISOLONE [Suspect]
     Active Substance: PREDNISOLONE
     Indication: Systemic lupus erythematosus
     Dosage: 15 MG, QD
     Route: 048
     Dates: start: 20151228
  5. PREDNISOLONE [Suspect]
     Active Substance: PREDNISOLONE
     Dosage: 30 MG, 1D
     Route: 048
     Dates: start: 20180119, end: 20180122
  6. PREDNISOLONE [Suspect]
     Active Substance: PREDNISOLONE
     Dosage: 25 MG, 1D
     Route: 048
     Dates: start: 20180123, end: 20180201
  7. PREDNISOLONE [Suspect]
     Active Substance: PREDNISOLONE
     Dosage: 30 MG, 1D
     Route: 048
     Dates: start: 20180202, end: 20180222
  8. PREDNISOLONE [Suspect]
     Active Substance: PREDNISOLONE
     Dosage: 28 MG, 1D
     Route: 048
     Dates: start: 20180223, end: 20180315
  9. PREDNISOLONE [Suspect]
     Active Substance: PREDNISOLONE
     Dosage: 26 MG, 1D
     Route: 048
     Dates: start: 20180316, end: 20180329
  10. PREDNISOLONE [Suspect]
     Active Substance: PREDNISOLONE
     Dosage: 24 MG, 1D
     Route: 048
     Dates: start: 20180330, end: 20180524
  11. PREDNISOLONE [Suspect]
     Active Substance: PREDNISOLONE
     Dosage: 23 MG, 1D
     Route: 048
     Dates: start: 20180525, end: 20180621
  12. PREDNISOLONE [Suspect]
     Active Substance: PREDNISOLONE
     Dosage: 22.5 MG, 1D
     Route: 048
     Dates: start: 20180622, end: 20180816
  13. PREDNISOLONE [Suspect]
     Active Substance: PREDNISOLONE
     Dosage: 23 MG, 1D
     Route: 048
     Dates: start: 20180817, end: 20180930
  14. PREDNISOLONE [Suspect]
     Active Substance: PREDNISOLONE
     Dosage: 22 MG, 1D
     Route: 048
     Dates: start: 20181001, end: 20181004
  15. PREDNISOLONE [Suspect]
     Active Substance: PREDNISOLONE
     Dosage: 21 MG, 1D
     Route: 048
     Dates: start: 20181005, end: 20181007
  16. PREDNISOLONE [Suspect]
     Active Substance: PREDNISOLONE
     Dosage: 20 MG, 1D
     Route: 048
     Dates: start: 20181008, end: 20181010
  17. PREDNISOLONE [Suspect]
     Active Substance: PREDNISOLONE
     Dosage: 19 MG, 1D
     Route: 048
     Dates: start: 20181011, end: 20181013
  18. PREDNISOLONE [Suspect]
     Active Substance: PREDNISOLONE
     Dosage: 18 MG, 1D
     Route: 048
     Dates: start: 20181014, end: 20181019
  19. PREDNISOLONE [Suspect]
     Active Substance: PREDNISOLONE
     Dosage: 17 MG, 1D
     Route: 048
     Dates: start: 20181020, end: 20181026
  20. PREDNISOLONE [Suspect]
     Active Substance: PREDNISOLONE
     Dosage: 16 MG, 1D
     Route: 048
     Dates: start: 20181027, end: 20181102
  21. PREDNISOLONE [Suspect]
     Active Substance: PREDNISOLONE
     Dosage: 15 MG, 1D
     Route: 048
     Dates: start: 20181103, end: 20181113
  22. PREDNISOLONE [Suspect]
     Active Substance: PREDNISOLONE
     Dosage: 14 MG, 1D
     Route: 048
     Dates: start: 20181114
  23. ITRACONAZOLE [Suspect]
     Active Substance: ITRACONAZOLE
     Indication: Systemic mycosis
     Dosage: 100 MG, 1D
     Route: 065
     Dates: start: 20180731, end: 20180929
  24. ITRACONAZOLE [Suspect]
     Active Substance: ITRACONAZOLE
     Indication: Chromoblastomycosis
     Dosage: 200 MG, 1D
     Route: 065
     Dates: start: 20180914, end: 20180927
  25. LAMISIL [Suspect]
     Active Substance: TERBINAFINE HYDROCHLORIDE
     Indication: Systemic mycosis
     Dosage: 125 MG, 1D
     Route: 065
     Dates: start: 20180927
  26. LAMISIL [Suspect]
     Active Substance: TERBINAFINE HYDROCHLORIDE
     Indication: Chromoblastomycosis
     Dosage: 250 MG, 1D
     Route: 065
     Dates: start: 20181002, end: 20181005
  27. RHEUMATREX [Suspect]
     Active Substance: METHOTREXATE SODIUM
     Indication: Systemic lupus erythematosus
     Dosage: 12 MG, WE
     Route: 048
     Dates: start: 20151228
  28. MICAFUNGIN SODIUM [Suspect]
     Active Substance: MICAFUNGIN SODIUM
     Indication: Systemic mycosis
     Dosage: 150 MG, 1D
     Route: 065
     Dates: start: 20181005
  29. MICAFUNGIN SODIUM [Suspect]
     Active Substance: MICAFUNGIN SODIUM
     Indication: Chromoblastomycosis
     Dosage: 200 MG, 1D
     Route: 065
     Dates: start: 20181013
  30. MICAFUNGIN SODIUM [Suspect]
     Active Substance: MICAFUNGIN SODIUM
     Dosage: 250 MG, 1D
     Route: 065
     Dates: start: 20181015
  31. MICAFUNGIN SODIUM [Suspect]
     Active Substance: MICAFUNGIN SODIUM
     Dosage: 300 MG, 1D
     Route: 065
     Dates: start: 20181018, end: 20181106
  32. AMBISOME [Suspect]
     Active Substance: AMPHOTERICIN B
     Indication: Systemic mycosis
     Dosage: 150 MG, 1D
     Route: 065
     Dates: start: 20181020, end: 20181106
  33. AMBISOME [Suspect]
     Active Substance: AMPHOTERICIN B
     Indication: Chromoblastomycosis
  34. FOLIAMIN TABLETS [Concomitant]
     Indication: Prophylaxis
     Dosage: 5 MG, WE
     Route: 048
     Dates: start: 20151228
  35. FOLIAMIN TABLETS [Concomitant]
     Indication: Systemic lupus erythematosus
  36. PLAQUENIL [Concomitant]
     Active Substance: HYDROXYCHLOROQUINE SULFATE
     Indication: Systemic lupus erythematosus
     Dosage: UNK
  37. TAKEPRON OD TABLETS [Concomitant]
     Indication: Prophylaxis against gastrointestinal ulcer
     Dosage: UNK
  38. EDIROL CAPSULE [Concomitant]
     Dosage: UNK
  39. BONALON [Concomitant]
     Active Substance: ALENDRONATE SODIUM
     Dosage: UNK
  40. SODIUM FERROUS CITRATE [Concomitant]
     Active Substance: SODIUM FERROUS CITRATE
     Dosage: UNK
  41. LOXOPROFEN SODIUM [Concomitant]
     Active Substance: LOXOPROFEN SODIUM
     Indication: Systemic lupus erythematosus
     Dosage: UNK
  42. LENDORMIN D TABLET [Concomitant]
     Dosage: UNK
  43. BASEN OD TABLETS [Concomitant]
     Dosage: UNK
  44. INFLUENZA VIRUS VACCINE [Concomitant]
     Active Substance: INFLUENZA VIRUS VACCINE
     Indication: Prophylaxis
     Dates: start: 20181116
  45. SULFAMETHOXAZOLE\TRIMETHOPRIM [Concomitant]
     Active Substance: SULFAMETHOXAZOLE\TRIMETHOPRIM
     Indication: Infection prophylaxis
     Dosage: 1 DF, QD
     Route: 048
     Dates: start: 20151228

REACTIONS (7)
  - Systemic mycosis [Recovered/Resolved]
  - Chromoblastomycosis [Not Recovered/Not Resolved]
  - Upper respiratory tract inflammation [Recovering/Resolving]
  - Upper respiratory tract inflammation [Recovering/Resolving]
  - Liver disorder [Recovered/Resolved]
  - Inappropriate schedule of product administration [Unknown]
  - Off label use [Unknown]

NARRATIVE: CASE EVENT DATE: 20180202
